FAERS Safety Report 7164105-7 (Version None)
Quarter: 2010Q4

REPORT INFORMATION
  Report Type: 
  Country: None (occurrence: None)
  Receive Date: 20101215
  Receipt Date: 20101202
  Transmission Date: 20110411
  Serious: Yes (Death, Other)
  Sender: FDA-Public Use
  Company Number: RU-ACTELION-A-CH2010-41734

PATIENT
  Sex: Male
  Weight: 23 kg

DRUGS (2)
  1. TRACLEER [Suspect]
     Indication: PULMONARY ARTERIAL HYPERTENSION
     Dosage: 31.25 MG, BID
     Route: 048
     Dates: start: 20101106, end: 20101111
  2. TRACLEER [Suspect]
     Dosage: 62.5 MG, BID
     Route: 048
     Dates: start: 20100803, end: 20101105

REACTIONS (5)
  - DRUG TOXICITY [None]
  - OEDEMA [None]
  - PRODUCTIVE COUGH [None]
  - RENAL DISORDER [None]
  - RIGHT VENTRICULAR FAILURE [None]
